FAERS Safety Report 23775325 (Version 5)
Quarter: 2025Q3

REPORT INFORMATION
  Report Type: Spontaneous
  Country: CA (occurrence: CA)
  Receive Date: 20240423
  Receipt Date: 20250929
  Transmission Date: 20251020
  Serious: Yes (Death, Hospitalization, Other)
  Sender: MYLAN
  Company Number: CA-MYLANLABS-2024M1036244

PATIENT
  Sex: Male

DRUGS (19)
  1. REVATIO [Suspect]
     Active Substance: SILDENAFIL CITRATE
     Indication: Pulmonary arterial hypertension
     Dosage: 20 MILLIGRAM, TID (THREE TIMES A DAY)
     Dates: start: 20231025
  2. REVATIO [Suspect]
     Active Substance: SILDENAFIL CITRATE
     Dosage: 40 MILLIGRAM, TID (THREE TIMES A DAY)
     Dates: start: 20231025
  3. REVATIO [Suspect]
     Active Substance: SILDENAFIL CITRATE
  4. REVATIO [Suspect]
     Active Substance: SILDENAFIL CITRATE
     Dosage: 20 MILLIGRAM, TID (THREE TIMES A DAY)
     Dates: start: 20240514
  5. COLCHICINE [Concomitant]
     Active Substance: COLCHICINE
  6. LASIX [Concomitant]
     Active Substance: FUROSEMIDE
  7. MORPHINE [Concomitant]
     Active Substance: MORPHINE
  8. OXYCODONE [Concomitant]
     Active Substance: OXYCODONE
  9. TIOTROPIUM [Concomitant]
     Active Substance: TIOTROPIUM
  10. RABEPRAZOLE [Concomitant]
     Active Substance: RABEPRAZOLE
  11. INSULIN NOS [Concomitant]
     Active Substance: INSULIN NOS
  12. GABAPENTIN [Concomitant]
     Active Substance: GABAPENTIN
  13. Cephalex [Concomitant]
  14. ATORVASTATIN [Concomitant]
     Active Substance: ATORVASTATIN
  15. MIDODRINE [Concomitant]
     Active Substance: MIDODRINE
  16. DAPAGLIFLOZIN [Concomitant]
     Active Substance: DAPAGLIFLOZIN
  17. TAMSULOSIN [Concomitant]
     Active Substance: TAMSULOSIN
  18. FUROSEMIDE [Concomitant]
     Active Substance: FUROSEMIDE
  19. FUROSEMIDE [Concomitant]
     Active Substance: FUROSEMIDE

REACTIONS (6)
  - Death [Fatal]
  - Cardiac disorder [Unknown]
  - Joint swelling [Unknown]
  - Pneumonia [Unknown]
  - Right ventricular failure [Unknown]
  - Off label use [Unknown]
